FAERS Safety Report 7550212-3 (Version None)
Quarter: 2011Q2

REPORT INFORMATION
  Report Type: 
  Country: None (occurrence: None)
  Receive Date: 20110615
  Receipt Date: 20110607
  Transmission Date: 20111010
  Serious: Yes (Hospitalization, Other)
  Sender: FDA-Public Use
  Company Number: GB-TEVA-285501ISR

PATIENT
  Age: 42 Year
  Sex: Female

DRUGS (3)
  1. QUETIAPINE [Suspect]
     Route: 048
  2. METFORMIN HCL [Suspect]
     Dates: start: 20070110
  3. CLOZAPINE [Suspect]
     Indication: SCHIZOPHRENIA
     Route: 048
     Dates: start: 20060912, end: 20061218

REACTIONS (1)
  - MULTIPLE DRUG OVERDOSE INTENTIONAL [None]
